FAERS Safety Report 12785243 (Version 4)
Quarter: 2016Q4

REPORT INFORMATION
  Report Type: Report from Study
  Country: US (occurrence: US)
  Receive Date: 20160927
  Receipt Date: 20161213
  Transmission Date: 20170207
  Serious: Yes (Other)
  Sender: FDA-Public Use
  Company Number: US-BAYER-2016-170893

PATIENT
  Age: 77 Year
  Sex: Female

DRUGS (5)
  1. NEXAVAR [Suspect]
     Active Substance: SORAFENIB
     Indication: HEPATOCELLULAR CARCINOMA
     Dosage: 600 MG, QD
     Route: 048
     Dates: start: 2016
  2. NEXAVAR [Suspect]
     Active Substance: SORAFENIB
     Indication: HEPATOCELLULAR CARCINOMA
     Dosage: 400 MG, BID
     Route: 048
     Dates: start: 20160825, end: 2016
  3. NEXAVAR [Suspect]
     Active Substance: SORAFENIB
     Indication: HEPATOCELLULAR CARCINOMA
     Dosage: 600 MG, QD (1 TABLET IN MORNING AND 2 TABLET IN EVENING)
     Route: 048
     Dates: start: 2016, end: 2016
  4. NEXAVAR [Suspect]
     Active Substance: SORAFENIB
     Indication: HEPATOCELLULAR CARCINOMA
     Dosage: 200 MG, BID
     Route: 048
     Dates: start: 2016, end: 2016
  5. NEXAVAR [Suspect]
     Active Substance: SORAFENIB
     Indication: HEPATOCELLULAR CARCINOMA
     Dosage: 400 MG, BID
     Route: 048
     Dates: start: 2016, end: 2016

REACTIONS (18)
  - Dry eye [None]
  - Skin discomfort [None]
  - Skin exfoliation [None]
  - Impaired healing [Not Recovered/Not Resolved]
  - Rash [Recovered/Resolved]
  - Vulvovaginal mycotic infection [Recovering/Resolving]
  - Skin warm [None]
  - Dry skin [None]
  - Eye disorder [None]
  - Rash erythematous [None]
  - Skin ulcer [None]
  - Feeling hot [None]
  - Dysphonia [Not Recovered/Not Resolved]
  - Groin pain [Recovering/Resolving]
  - Memory impairment [Recovering/Resolving]
  - Hyponatraemia [None]
  - Blood pressure increased [Not Recovered/Not Resolved]
  - Dry skin [Recovering/Resolving]

NARRATIVE: CASE EVENT DATE: 2016
